FAERS Safety Report 9642890 (Version 1)
Quarter: 2013Q4

REPORT INFORMATION
  Report Type: Spontaneous
  Country: SE (occurrence: SE)
  Receive Date: 20131024
  Receipt Date: 20131024
  Transmission Date: 20140711
  Serious: Yes (Other)
  Sender: FDA-Public Use
  Company Number: PHHY2013SE119410

PATIENT
  Age: 15 Year
  Sex: Male

DRUGS (1)
  1. RITALINE [Suspect]
     Dosage: UNK UKN, UNK

REACTIONS (1)
  - Factor II mutation [Unknown]
